FAERS Safety Report 8540352-4 (Version None)
Quarter: 2012Q3

REPORT INFORMATION
  Report Type: 
  Country: None (occurrence: None)
  Receive Date: 20120726
  Receipt Date: 20100110
  Transmission Date: 20120928
  Serious: Yes (Death)
  Sender: FDA-Public Use
  Company Number: IE-ROCHE-1092505

PATIENT
  Sex: Female

DRUGS (4)
  1. MIRCERA [Suspect]
  2. MIRCERA [Suspect]
  3. MIRCERA [Suspect]
     Indication: PRODUCT USED FOR UNKNOWN INDICATION
  4. MIRCERA [Suspect]

REACTIONS (1)
  - DEATH [None]
